FAERS Safety Report 17458358 (Version 5)
Quarter: 2020Q2

REPORT INFORMATION
  Report Type: Spontaneous
  Country: US (occurrence: US)
  Receive Date: 20200225
  Receipt Date: 20200611
  Transmission Date: 20200713
  Serious: Yes (Other)
  Sender: FDA-Public Use
  Company Number: US-PFIZER INC-2020004589

PATIENT
  Age: 59 Year
  Sex: Male
  Weight: 101 kg

DRUGS (3)
  1. FLECTOR [Suspect]
     Active Substance: DICLOFENAC EPOLAMINE
     Dosage: UNK, EVERY 6
  2. FLECTOR [Suspect]
     Active Substance: DICLOFENAC EPOLAMINE
     Indication: ROTATOR CUFF SYNDROME
     Dosage: UNK, EVERY 12 HOURS
     Dates: start: 201911
  3. SIMVASTAT [Concomitant]
     Dosage: 40 MG, UNK
     Dates: start: 1997

REACTIONS (6)
  - Laboratory test abnormal [Unknown]
  - Product use in unapproved indication [Unknown]
  - Off label use [Unknown]
  - Intentional product misuse [Unknown]
  - Drug effective for unapproved indication [Unknown]
  - Diabetes mellitus [Recovered/Resolved]

NARRATIVE: CASE EVENT DATE: 201911
